FAERS Safety Report 23844929 (Version 1)
Quarter: 2024Q2

REPORT INFORMATION
  Report Type: Report from Study
  Country: US (occurrence: US)
  Receive Date: 20240511
  Receipt Date: 20240511
  Transmission Date: 20240716
  Serious: Yes (Hospitalization)
  Sender: FDA-Public Use
  Company Number: US-ABBVIE-5747605

PATIENT
  Sex: Male

DRUGS (1)
  1. VENCLEXTA [Suspect]
     Active Substance: VENETOCLAX
     Indication: Acute myeloid leukaemia
     Dosage: DURATION TEXT: DOSING IS 7 DAYS ON, 21 DAYS OFF
     Route: 048
     Dates: start: 20231206

REACTIONS (5)
  - Agitation [Unknown]
  - Dehydration [Unknown]
  - Dizziness [Unknown]
  - Mobility decreased [Not Recovered/Not Resolved]
  - Fall [Unknown]
